FAERS Safety Report 15361936 (Version 1)
Quarter: 2018Q3

REPORT INFORMATION
  Report Type: Spontaneous
  Country: US (occurrence: US)
  Receive Date: 20180907
  Receipt Date: 20180907
  Transmission Date: 20181010
  Serious: Yes (Other)
  Sender: FDA-Public Use
  Company Number: US-TEVA-2018-US-952097

PATIENT
  Age: 43 Year
  Sex: Male

DRUGS (2)
  1. VIMPAT [Concomitant]
     Active Substance: LACOSAMIDE
     Dosage: 200 MG AT NIGHT
     Route: 065
  2. EPITOL [Suspect]
     Active Substance: CARBAMAZEPINE
     Dosage: 400 MG AT NIGHT
     Route: 065

REACTIONS (7)
  - Dizziness [Unknown]
  - Treatment noncompliance [Unknown]
  - Seizure [Not Recovered/Not Resolved]
  - Fatigue [Unknown]
  - Confusional state [Unknown]
  - Balance disorder [Unknown]
  - Somnolence [Unknown]

NARRATIVE: CASE EVENT DATE: 20151113
